FAERS Safety Report 19519828 (Version 2)
Quarter: 2021Q3

REPORT INFORMATION
  Report Type: Spontaneous
  Country: CZ (occurrence: CZ)
  Receive Date: 20210712
  Receipt Date: 20210723
  Transmission Date: 20211014
  Serious: Yes (Hospitalization)
  Sender: FDA-Public Use
  Company Number: CZ-VERTEX PHARMACEUTICALS-2021-010284

PATIENT
  Sex: Male

DRUGS (2)
  1. ORKAMBI [Suspect]
     Active Substance: IVACAFTOR\LUMACAFTOR
     Dosage: DOSE REDUCTION
     Route: 048
     Dates: start: 20210703
  2. ORKAMBI [Suspect]
     Active Substance: IVACAFTOR\LUMACAFTOR
     Indication: CYSTIC FIBROSIS
     Dosage: 2 DOSAGE FORM, BID
     Route: 048
     Dates: start: 20200408, end: 20210624

REACTIONS (8)
  - Otitis media [Unknown]
  - Portal hypertension [Unknown]
  - Hepatic fibrosis [Unknown]
  - Short-bowel syndrome [Unknown]
  - Vitamin A decreased [Not Recovered/Not Resolved]
  - Keratitis [Unknown]
  - Xerophthalmia [Not Recovered/Not Resolved]
  - Dehydration [Unknown]

NARRATIVE: CASE EVENT DATE: 2021
